FAERS Safety Report 22017025 (Version 2)
Quarter: 2023Q1

REPORT INFORMATION
  Report Type: Report from Study
  Country: RO (occurrence: RO)
  Receive Date: 20230221
  Receipt Date: 20230307
  Transmission Date: 20230417
  Serious: Yes (Hospitalization)
  Sender: FDA-Public Use
  Company Number: RO-002147023-NVSC2023RO031074

PATIENT

DRUGS (1)
  1. RUXOLITINIB [Suspect]
     Active Substance: RUXOLITINIB
     Indication: Myelodysplastic syndrome
     Dosage: 5 MG, BID (APPROXIMATELY 3 YEARS, 1 IN THE MORNING 1 IN THE EVENING)
     Route: 048
     Dates: start: 2020

REACTIONS (3)
  - Product use in unapproved indication [Unknown]
  - Tongue neoplasm malignant stage unspecified [Recovering/Resolving]
  - Second primary malignancy [Recovering/Resolving]
